FAERS Safety Report 19151952 (Version 1)
Quarter: 2021Q2

REPORT INFORMATION
  Report Type: Spontaneous
  Country: US (occurrence: US)
  Receive Date: 20210419
  Receipt Date: 20210419
  Transmission Date: 20210717
  Serious: No
  Sender: FDA-Public Use
  Company Number: US-SA-2021SA111492

PATIENT

DRUGS (2)
  1. TUBERCULIN PPD [Suspect]
     Active Substance: TUBERCULIN PURIFIED PROTEIN DERIVATIVE
  2. TUBERCULIN PPD [Suspect]
     Active Substance: TUBERCULIN PURIFIED PROTEIN DERIVATIVE
     Indication: TUBERCULIN TEST
     Dosage: 0.9 ML
     Route: 065

REACTIONS (1)
  - Overdose [Unknown]
